FAERS Safety Report 14151549 (Version 2)
Quarter: 2017Q4

REPORT INFORMATION
  Report Type: Spontaneous
  Country: US (occurrence: US)
  Receive Date: 20171102
  Receipt Date: 20171227
  Transmission Date: 20180321
  Serious: No
  Sender: FDA-Public Use
  Company Number: US-PFIZER INC-2017472326

PATIENT
  Age: 58 Year
  Sex: Female

DRUGS (2)
  1. IBRANCE [Suspect]
     Active Substance: PALBOCICLIB
     Indication: BREAST CANCER FEMALE
     Dosage: 125 MG, CYCLIC (X21 DAYS OFF 7 DAYS)
     Route: 048
     Dates: start: 20160611
  2. IBRANCE [Suspect]
     Active Substance: PALBOCICLIB
     Dosage: 125 MG, DAILY
     Route: 048

REACTIONS (5)
  - Dry skin [Unknown]
  - Pain in extremity [Unknown]
  - Alopecia [Unknown]
  - Memory impairment [Unknown]
  - Bone pain [Unknown]

NARRATIVE: CASE EVENT DATE: 20171030
